FAERS Safety Report 5143771-1 (Version None)
Quarter: 2006Q4

REPORT INFORMATION
  Report Type: 
  Country: None (occurrence: None)
  Receive Date: 20061106
  Receipt Date: 20061024
  Transmission Date: 20070319
  Serious: Yes (Other)
  Sender: FDA-Public Use
  Company Number: US-JNJFOC-20061005920

PATIENT
  Sex: Female
  Weight: 115.67 kg

DRUGS (10)
  1. FENTANYL TRANSDERMAL SYSTEM [Suspect]
     Indication: BACK PAIN
     Route: 062
  2. LYRICA [Concomitant]
     Indication: BACK PAIN
     Route: 048
  3. REGLAN [Concomitant]
     Indication: GASTRIC ULCER
     Route: 048
  4. NEXIUM [Concomitant]
     Indication: GASTRIC ULCER
     Route: 048
  5. MACRODANTIN [Concomitant]
     Indication: CYSTITIS
     Route: 048
  6. TEGRETOL-XR [Concomitant]
     Indication: CONVULSION
     Route: 048
  7. LOTENSIN [Concomitant]
     Indication: HYPERTENSION
     Route: 048
  8. ESTRACE [Concomitant]
     Indication: OESTROGEN REPLACEMENT THERAPY
     Route: 048
  9. ZOLOFT [Concomitant]
     Indication: DEPRESSION
     Route: 048
  10. VITAMIN CAP [Concomitant]
     Indication: ROUTINE HEALTH MAINTENANCE
     Route: 048

REACTIONS (2)
  - CONVULSION [None]
  - DRUG INEFFECTIVE [None]
